FAERS Safety Report 9279192 (Version 1)
Quarter: 2013Q2

REPORT INFORMATION
  Report Type: Spontaneous
  Country: US (occurrence: US)
  Receive Date: 20130508
  Receipt Date: 20130508
  Transmission Date: 20140414
  Serious: No
  Sender: FDA-Public Use
  Company Number: US-TARO-2012P1010085

PATIENT
  Age: 56 Year
  Sex: Male
  Weight: 149.69 kg

DRUGS (3)
  1. MOMETASONE FUROATE [Suspect]
     Dates: start: 200203
  2. MOMETASONE FUROATE [Suspect]
     Dates: start: 20120215
  3. MEDICATIONS RELATED TO CORONARY BYPASS [Concomitant]

REACTIONS (2)
  - Drug ineffective [Not Recovered/Not Resolved]
  - Off label use [Not Recovered/Not Resolved]
